FAERS Safety Report 4459372-4 (Version None)
Quarter: 2004Q3

REPORT INFORMATION
  Report Type: 
  Country: None (occurrence: None)
  Receive Date: 20040927
  Receipt Date: 20040913
  Transmission Date: 20050211
  Serious: Yes (Hospitalization)
  Sender: FDA-Public Use
  Company Number: DE-ROCHE-380268

PATIENT
  Age: 54 Year
  Sex: Female

DRUGS (3)
  1. CAPECITABINE [Suspect]
     Indication: BREAST CANCER
     Route: 048
     Dates: start: 20040223, end: 20040227
  2. CAPECITABINE [Suspect]
     Route: 048
  3. VINORELBIN [Concomitant]
     Dates: start: 20040223

REACTIONS (3)
  - ABDOMINAL PAIN [None]
  - INVESTIGATION ABNORMAL [None]
  - NAUSEA [None]
